FAERS Safety Report 8309021-X (Version None)
Quarter: 2012Q2

REPORT INFORMATION
  Report Type: 
  Country: None (occurrence: None)
  Receive Date: 20120424
  Receipt Date: 20120413
  Transmission Date: 20120825
  Serious: Yes (Hospitalization, Other)
  Sender: FDA-Public Use
  Company Number: CA-ROCHE-GNE279818

PATIENT
  Sex: Female

DRUGS (7)
  1. XOLAIR [Suspect]
     Route: 058
     Dates: start: 20090911
  2. XOLAIR [Suspect]
     Route: 058
     Dates: start: 20100115
  3. XOLAIR [Suspect]
     Indication: ASTHMA
     Route: 058
     Dates: start: 20090225
  4. XOLAIR [Suspect]
     Route: 058
     Dates: start: 20120413
  5. XOLAIR [Suspect]
     Route: 058
     Dates: start: 20091204
  6. XOLAIR [Suspect]
     Indication: HYPERSENSITIVITY
     Route: 058
     Dates: start: 20090703
  7. XOLAIR [Suspect]
     Route: 058
     Dates: start: 20091106

REACTIONS (21)
  - SALIVARY HYPERSECRETION [None]
  - INFLUENZA [None]
  - COUGH [None]
  - NASAL CONGESTION [None]
  - CONDITION AGGRAVATED [None]
  - BLOOD PRESSURE DECREASED [None]
  - NASOPHARYNGITIS [None]
  - PRODUCTIVE COUGH [None]
  - PNEUMONIA [None]
  - MALAISE [None]
  - ASTHMA [None]
  - WHEEZING [None]
  - UPPER-AIRWAY COUGH SYNDROME [None]
  - LUNG DISORDER [None]
  - LUNG INFECTION [None]
  - OROPHARYNGEAL PAIN [None]
  - FATIGUE [None]
  - RHINORRHOEA [None]
  - OXYGEN SATURATION DECREASED [None]
  - PYREXIA [None]
  - SNEEZING [None]
